FAERS Safety Report 16985184 (Version 1)
Quarter: 2019Q4

REPORT INFORMATION
  Report Type: Spontaneous
  Country: GB (occurrence: GB)
  Receive Date: 20191101
  Receipt Date: 20191101
  Transmission Date: 20200122
  Serious: Yes (Other)
  Sender: FDA-Public Use
  Company Number: GB-JNJFOC-20191012847

PATIENT
  Age: 38 Year
  Sex: Female

DRUGS (1)
  1. SIMPONI [Suspect]
     Active Substance: GOLIMUMAB
     Indication: ANKYLOSING SPONDYLITIS
     Route: 058

REACTIONS (9)
  - Tooth repair [Unknown]
  - Rash [Not Recovered/Not Resolved]
  - Chest discomfort [Unknown]
  - Reproductive tract disorder [Unknown]
  - Malaise [Unknown]
  - Diarrhoea [Unknown]
  - Oropharyngeal pain [Not Recovered/Not Resolved]
  - Infection [Unknown]
  - Hip surgery [Unknown]

NARRATIVE: CASE EVENT DATE: 2019
